FAERS Safety Report 19507939 (Version 1)
Quarter: 2021Q3

REPORT INFORMATION
  Report Type: Spontaneous
  Country: CN (occurrence: CN)
  Receive Date: 20210708
  Receipt Date: 20210708
  Transmission Date: 20211014
  Serious: Yes (Hospitalization, Other)
  Sender: FDA-Public Use
  Company Number: CN-PFIZER INC-2021815887

PATIENT
  Age: 12 Year
  Sex: Male
  Weight: 86 kg

DRUGS (1)
  1. METHOTREXATE. [Suspect]
     Active Substance: METHOTREXATE
     Indication: NEOPLASM MALIGNANT
     Dosage: 15000 MG, 1X/DAY
     Route: 041
     Dates: start: 20210528, end: 20210528

REACTIONS (3)
  - Mouth ulceration [Recovering/Resolving]
  - Myelosuppression [Unknown]
  - Infection [Unknown]

NARRATIVE: CASE EVENT DATE: 20210604
